FAERS Safety Report 10721812 (Version 1)
Quarter: 2015Q1

REPORT INFORMATION
  Report Type: Spontaneous
  Country: US (occurrence: US)
  Receive Date: 20150119
  Receipt Date: 20150119
  Transmission Date: 20150721
  Serious: No
  Sender: FDA-Public Use
  Company Number: US-BAUSCH-BL-2014-002491

PATIENT
  Age: 57 Year
  Sex: Female
  Weight: 74.46 kg

DRUGS (1)
  1. ALAWAY [Suspect]
     Active Substance: KETOTIFEN FUMARATE
     Indication: EYE DISCHARGE
     Dosage: INSTILLING 1 DROP EACH EYE ONCE A DAY
     Route: 047
     Dates: start: 20140507, end: 20140515

REACTIONS (1)
  - Fascial infection [Not Recovered/Not Resolved]

NARRATIVE: CASE EVENT DATE: 20140514
